FAERS Safety Report 16466118 (Version 2)
Quarter: 2020Q1

REPORT INFORMATION
  Report Type: Other
  Country: US (occurrence: US)
  Receive Date: 20190621
  Receipt Date: 20200324
  Transmission Date: 20200409
  Serious: No
  Sender: FDA-Public Use
  Company Number: US-ACORDA-ACO_159115_2019

PATIENT
  Sex: Female
  Weight: 68.03 kg

DRUGS (1)
  1. INBRIJA [Suspect]
     Active Substance: LEVODOPA
     Indication: PARKINSON^S DISEASE
     Dosage: 2 CAPSULES THREE TIMES PER DAY AS NEEDED
     Dates: start: 2019

REACTIONS (2)
  - Product residue present [Unknown]
  - Cough [Not Recovered/Not Resolved]
